FAERS Safety Report 8057012-9 (Version None)
Quarter: 2012Q1

REPORT INFORMATION
  Report Type: 
  Country: None (occurrence: None)
  Receive Date: 20120119
  Receipt Date: 20120113
  Transmission Date: 20120608
  Serious: No
  Sender: FDA-Public Use
  Company Number: US-B.I. PHARMACEUTICALS,INC./RIDGEFIELD-2012-BP-00771BP

PATIENT
  Age: 68 Year
  Sex: Female

DRUGS (2)
  1. ZANTAC [Suspect]
     Indication: ABDOMINAL PAIN UPPER
  2. ZANTAC [Suspect]
     Indication: GASTRIC ULCER

REACTIONS (1)
  - DRUG INEFFECTIVE [None]
